FAERS Safety Report 6704080-X (Version None)
Quarter: 2010Q2

REPORT INFORMATION
  Report Type: 
  Country: None (occurrence: None)
  Receive Date: 20100428
  Receipt Date: 20100415
  Transmission Date: 20101027
  Serious: Yes (Hospitalization)
  Sender: FDA-Public Use
  Company Number: 2010MB000027

PATIENT
  Age: 76 Year
  Sex: Female

DRUGS (4)
  1. MOXATAG [Suspect]
     Indication: PHARYNGITIS
  2. MOXATAG [Suspect]
     Indication: RASH
  3. STRONTIUM RANELATE (STRONTIUM RANELATE) [Suspect]
     Indication: DRUG USE FOR UNKNOWN INDICATION
  4. LANSOPRAZOLE [Suspect]
     Indication: DRUG USE FOR UNKNOWN INDICATION

REACTIONS (5)
  - DISEASE RECURRENCE [None]
  - DRUG RASH WITH EOSINOPHILIA AND SYSTEMIC SYMPTOMS [None]
  - HUMAN HERPESVIRUS 6 INFECTION [None]
  - RENAL FAILURE [None]
  - SKIN TEST POSITIVE [None]
